FAERS Safety Report 8605890-4 (Version None)
Quarter: 2012Q3

REPORT INFORMATION
  Report Type: 
  Country: None (occurrence: None)
  Receive Date: 20120820
  Receipt Date: 20120815
  Transmission Date: 20120928
  Serious: Yes (Other)
  Sender: FDA-Public Use
  Company Number: GB-GLAXOSMITHKLINE-B0814994A

PATIENT
  Sex: Male
  Weight: 79.5 kg

DRUGS (7)
  1. LOSARTAN POTASSIUM [Concomitant]
     Indication: HYPERTENSION
  2. FLUTICASONE PROPIONATE/SALMETEROL [Concomitant]
     Dosage: 2PUFF TWICE PER DAY
     Dates: start: 20120730
  3. VENTOLIN [Suspect]
     Indication: ASTHMA
     Dosage: 2PUFF AS REQUIRED
     Route: 055
     Dates: start: 20120711, end: 20120713
  4. SIMVASTATIN [Concomitant]
     Indication: HYPERCHOLESTEROLAEMIA
     Dosage: 10MG PER DAY
  5. BENDROFLUMETHIAZIDE [Concomitant]
     Indication: HYPERTENSION
  6. AMLODIPINE [Concomitant]
     Indication: HYPERTENSION
     Dosage: 10MG PER DAY
  7. ACETAMINOPHEN/HYDROCODONE BITARTRATE [Concomitant]
     Dates: start: 20120720

REACTIONS (4)
  - PRODUCT QUALITY ISSUE [None]
  - DRUG INEFFECTIVE [None]
  - DEVICE ISSUE [None]
  - ASTHMA [None]
